FAERS Safety Report 6310276-1 (Version None)
Quarter: 2009Q3

REPORT INFORMATION
  Report Type: 
  Country: None (occurrence: None)
  Receive Date: 20090814
  Receipt Date: 20090805
  Transmission Date: 20100115
  Serious: Yes (Hospitalization, Other)
  Sender: FDA-Public Use
  Company Number: PHHY2009FR33026

PATIENT
  Sex: Female

DRUGS (12)
  1. TAREG [Suspect]
  2. EXFORGE [Suspect]
  3. ALLOPURINOL [Suspect]
     Dosage: 300 MG, QD
     Dates: end: 20090427
  4. DAFALGAN [Concomitant]
     Dosage: 25 MG, QD
  5. LASIX [Concomitant]
     Dosage: 40 MG, BID
  6. KARDEGIC [Concomitant]
     Dosage: 75 MG, QD
  7. STILNOX [Concomitant]
     Dosage: 10 MG, QD
  8. HYPERIUM [Concomitant]
     Dosage: 1 MG, QD
  9. NOVOMIX 30 [Concomitant]
  10. DEXTRARINE PHENYLBUTAZONE [Concomitant]
  11. KETOPROFEN [Concomitant]
     Dosage: UNK
     Dates: start: 20090317, end: 20090319
  12. NORFLOXACIN [Concomitant]
     Dosage: UNK
     Dates: start: 20090321, end: 20090331

REACTIONS (4)
  - BEDRIDDEN [None]
  - DRUG RASH WITH EOSINOPHILIA AND SYSTEMIC SYMPTOMS [None]
  - EOSINOPHILIA [None]
  - RASH MACULO-PAPULAR [None]
